FAERS Safety Report 15277352 (Version 1)
Quarter: 2018Q3

REPORT INFORMATION
  Report Type: Spontaneous
  Country: US (occurrence: US)
  Receive Date: 20180730
  Receipt Date: 20180730
  Transmission Date: 20181010
  Serious: Yes (Other)
  Sender: FDA-Public Use
  Company Number: None

PATIENT
  Age: 60 Year
  Sex: Female
  Weight: 81 kg

DRUGS (3)
  1. METRONIDAZOLE. [Suspect]
     Active Substance: METRONIDAZOLE
     Indication: DIVERTICULITIS
     Dosage: ?          QUANTITY:30 TABLET(S);?
     Route: 048
     Dates: start: 20180605, end: 20180615
  2. CIPROFLOXACIN. [Suspect]
     Active Substance: CIPROFLOXACIN
     Indication: DIVERTICULITIS
     Dosage: ?          QUANTITY:20 TABLET(S);?
     Route: 048
     Dates: start: 20180605, end: 20180615
  3. PROBIOTICS [Concomitant]
     Active Substance: PROBIOTICS NOS

REACTIONS (13)
  - Arthralgia [None]
  - Pain in extremity [None]
  - Decreased appetite [None]
  - Depression [None]
  - Lethargy [None]
  - Choking [None]
  - Muscle spasms [None]
  - Nausea [None]
  - Abnormal dreams [None]
  - Gait disturbance [None]
  - Nightmare [None]
  - Dizziness [None]
  - Tongue disorder [None]

NARRATIVE: CASE EVENT DATE: 20180605
